FAERS Safety Report 9616023 (Version 1)
Quarter: 2013Q4

REPORT INFORMATION
  Report Type: Spontaneous
  Country: US (occurrence: US)
  Receive Date: 20131011
  Receipt Date: 20131011
  Transmission Date: 20140711
  Serious: No
  Sender: FDA-Public Use
  Company Number: US-PURDUE-USA-2013-0100270

PATIENT
  Age: 51 Year
  Sex: Female

DRUGS (3)
  1. BUTRANS [Suspect]
     Indication: PAIN
     Dosage: 20 MCG/HR, WEEKLY
     Route: 062
     Dates: start: 201212
  2. DEMEROL [Concomitant]
     Indication: BREAKTHROUGH PAIN
     Dosage: 5 MG, DAILY
     Route: 048
  3. OXYCODONE [Concomitant]
     Indication: BREAKTHROUGH PAIN
     Dosage: 1 TABLET, DAILY
     Route: 048
     Dates: start: 201212

REACTIONS (8)
  - Application site discolouration [Not Recovered/Not Resolved]
  - Application site burn [Not Recovered/Not Resolved]
  - Application site discharge [Not Recovered/Not Resolved]
  - Application site rash [Not Recovered/Not Resolved]
  - Application site irritation [Not Recovered/Not Resolved]
  - Application site vesicles [Not Recovered/Not Resolved]
  - Rhinorrhoea [Not Recovered/Not Resolved]
  - Application site erythema [Not Recovered/Not Resolved]
